FAERS Safety Report 23109506 (Version 1)
Quarter: 2023Q4

REPORT INFORMATION
  Report Type: Spontaneous
  Country: AT (occurrence: AT)
  Receive Date: 20231026
  Receipt Date: 20231026
  Transmission Date: 20240110
  Serious: Yes (Other)
  Sender: FDA-Public Use
  Company Number: None

PATIENT
  Age: 59 Year
  Sex: Male

DRUGS (1)
  1. TRAZIMERA [Suspect]
     Active Substance: TRASTUZUMAB-QYYP
     Indication: Chemotherapy
     Dosage: 125 ML, SINGLE
     Dates: start: 20230705

REACTIONS (2)
  - Application site necrosis [Unknown]
  - Application site extravasation [Unknown]

NARRATIVE: CASE EVENT DATE: 20230705
